FAERS Safety Report 13934944 (Version 3)
Quarter: 2019Q4

REPORT INFORMATION
  Report Type: Spontaneous
  Country: US (occurrence: US)
  Receive Date: 20170905
  Receipt Date: 20191128
  Transmission Date: 20200122
  Serious: Yes (Other)
  Sender: FDA-Public Use
  Company Number: US-ASTRAZENECA-2017SE89066

PATIENT
  Age: 20744 Day
  Sex: Female
  Weight: 107.5 kg

DRUGS (16)
  1. DULOXETINE. [Concomitant]
     Active Substance: DULOXETINE
     Dosage: 30.0MG UNKNOWN
  2. MONTELUKAST SODIUM. [Concomitant]
     Active Substance: MONTELUKAST SODIUM
     Dates: start: 20160429
  3. GLUCOTROL [Concomitant]
     Active Substance: GLIPIZIDE
     Dosage: 5.0MG UNKNOWN
  4. GABAPENTIN. [Concomitant]
     Active Substance: GABAPENTIN
  5. ATORVASTATIN CALCIUM. [Concomitant]
     Active Substance: ATORVASTATIN CALCIUM
     Dates: start: 20160429
  6. NEXIUM [Suspect]
     Active Substance: ESOMEPRAZOLE MAGNESIUM
     Indication: GASTRIC PH DECREASED
     Route: 048
     Dates: start: 20090803
  7. METOPROLOL SUCCINATE. [Concomitant]
     Active Substance: METOPROLOL SUCCINATE
     Dates: start: 20160429
  8. BENICAR [Concomitant]
     Active Substance: OLMESARTAN MEDOXOMIL
     Dosage: 40.0MG UNKNOWN
  9. ZANTAC [Concomitant]
     Active Substance: RANITIDINE HYDROCHLORIDE
  10. NEXIUM [Suspect]
     Active Substance: ESOMEPRAZOLE MAGNESIUM
     Indication: GASTRIC PH DECREASED
     Route: 048
  11. NORVASC [Concomitant]
     Active Substance: AMLODIPINE BESYLATE
     Dates: start: 20160429
  12. FISH OIL [Concomitant]
     Active Substance: FISH OIL
     Dates: start: 20160429
  13. ALLOPURINOL. [Concomitant]
     Active Substance: ALLOPURINOL
     Dosage: 100.0MG UNKNOWN
     Dates: start: 20160102
  14. NEXIUM [Suspect]
     Active Substance: ESOMEPRAZOLE MAGNESIUM
     Indication: GASTRIC PH DECREASED
     Route: 048
     Dates: start: 201001, end: 201605
  15. LASIX [Concomitant]
     Active Substance: FUROSEMIDE
     Dates: start: 20160429
  16. ZETIA [Concomitant]
     Active Substance: EZETIMIBE

REACTIONS (6)
  - Chronic kidney disease [Unknown]
  - Tubulointerstitial nephritis [Unknown]
  - Acute kidney injury [Unknown]
  - Renal failure [Unknown]
  - Hyperparathyroidism secondary [Unknown]
  - End stage renal disease [Unknown]

NARRATIVE: CASE EVENT DATE: 20131202
